FAERS Safety Report 9728730 (Version 3)
Quarter: 2014Q1

REPORT INFORMATION
  Report Type: Spontaneous
  Country: US (occurrence: US)
  Receive Date: 20131204
  Receipt Date: 20140213
  Transmission Date: 20141002
  Serious: No
  Sender: FDA-Public Use
  Company Number: US-PFIZER INC-2013344922

PATIENT
  Age: 83 Year
  Sex: Female

DRUGS (1)
  1. AMIODARONE HCL [Suspect]
     Dosage: 200 MG, DAILY
     Route: 065

REACTIONS (5)
  - Drug hypersensitivity [Unknown]
  - Eye swelling [Unknown]
  - Anosmia [Unknown]
  - Ageusia [Unknown]
  - Medication error [Unknown]
